FAERS Safety Report 12686505 (Version 1)
Quarter: 2016Q3

REPORT INFORMATION
  Report Type: Spontaneous
  Country: US (occurrence: US)
  Receive Date: 20160825
  Receipt Date: 20160825
  Transmission Date: 20161109
  Serious: No
  Sender: FDA-Public Use
  Company Number: US-JAZZ-2016-US-007005

PATIENT
  Sex: Female

DRUGS (18)
  1. XYREM [Suspect]
     Active Substance: SODIUM OXYBATE
     Indication: NARCOLEPSY
     Dosage: 3.75 G, BID
     Route: 048
     Dates: start: 200210
  2. XYREM [Suspect]
     Active Substance: SODIUM OXYBATE
     Indication: CATAPLEXY
  3. FLEXERIL [Concomitant]
     Active Substance: CYCLOBENZAPRINE HYDROCHLORIDE
  4. AMOXICILLIN. [Concomitant]
     Active Substance: AMOXICILLIN
  5. PROVIGIL [Concomitant]
     Active Substance: MODAFINIL
  6. FORTICAL [Concomitant]
     Active Substance: CALCITONIN SALMON
  7. PERCOCET [Concomitant]
     Active Substance: ACETAMINOPHEN\OXYCODONE HYDROCHLORIDE
  8. NORVASC [Concomitant]
     Active Substance: AMLODIPINE BESYLATE
  9. DUREZOL [Concomitant]
     Active Substance: DIFLUPREDNATE
  10. MIDAZOLAM HCL [Concomitant]
     Active Substance: MIDAZOLAM HYDROCHLORIDE
  11. ACTONEL [Concomitant]
     Active Substance: RISEDRONATE SODIUM
  12. VICODIN ES [Concomitant]
     Active Substance: ACETAMINOPHEN\HYDROCODONE BITARTRATE
  13. CALCIUM +D [Concomitant]
     Active Substance: CALCIUM\VITAMIN D
  14. TOBRAMYCIN. [Concomitant]
     Active Substance: TOBRAMYCIN
  15. VALIUM [Concomitant]
     Active Substance: DIAZEPAM
  16. IBUPROFEN. [Concomitant]
     Active Substance: IBUPROFEN
  17. MOBIC [Concomitant]
     Active Substance: MELOXICAM
  18. REFRESH PLUS [Concomitant]
     Active Substance: CARBOXYMETHYLCELLULOSE SODIUM

REACTIONS (1)
  - Cough [Not Recovered/Not Resolved]
